FAERS Safety Report 13906423 (Version 1)
Quarter: 2017Q3

REPORT INFORMATION
  Report Type: Report from Study
  Country: KR (occurrence: KR)
  Receive Date: 20170825
  Receipt Date: 20170825
  Transmission Date: 20171127
  Serious: Yes (Hospitalization)
  Sender: FDA-Public Use
  Company Number: KR-OTSUKA-2017_018085

PATIENT
  Age: 70 Year
  Sex: Male

DRUGS (5)
  1. BLINDED CILOSTAZOL [Suspect]
     Active Substance: CILOSTAZOL
     Indication: CEREBRAL SMALL VESSEL ISCHAEMIC DISEASE
     Dosage: UNK
     Route: 065
     Dates: start: 20150731
  2. BLINDED *ASPIRIN [Suspect]
     Active Substance: ASPIRIN
     Indication: CEREBRAL SMALL VESSEL ISCHAEMIC DISEASE
     Dosage: UNK
     Route: 065
     Dates: start: 20150731
  3. DONEPEZIL. [Concomitant]
     Active Substance: DONEPEZIL
     Indication: HYPERTENSION
     Dosage: 5 MG, QD
     Route: 048
     Dates: start: 20150605
  4. ACERTIL [Concomitant]
     Active Substance: PERINDOPRIL ARGININE
     Indication: VASCULAR DEMENTIA
     Dosage: 4 MG, QD
     Route: 048
     Dates: start: 20150828
  5. BLINDED CILOSTAZOL [Suspect]
     Active Substance: CILOSTAZOL
     Indication: CEREBRAL SMALL VESSEL ISCHAEMIC DISEASE
     Dosage: UNK
     Route: 065
     Dates: start: 20150731

REACTIONS (1)
  - Mouth haemorrhage [Recovered/Resolved]

NARRATIVE: CASE EVENT DATE: 20170616
